FAERS Safety Report 4748418-1 (Version None)
Quarter: 2005Q3

REPORT INFORMATION
  Report Type: 
  Country: None (occurrence: None)
  Receive Date: 20050818
  Receipt Date: 20050805
  Transmission Date: 20060218
  Serious: Yes (Other)
  Sender: FDA-Public Use
  Company Number: SP00476

PATIENT
  Sex: Male

DRUGS (2)
  1. COLAZAL [Suspect]
     Indication: COLITIS ULCERATIVE
  2. SULFASALAZINE [Concomitant]

REACTIONS (1)
  - POLYNEUROPATHY [None]
